FAERS Safety Report 8491887-4 (Version None)
Quarter: 2012Q3

REPORT INFORMATION
  Report Type: 
  Country: None (occurrence: None)
  Receive Date: 20120706
  Receipt Date: 20111007
  Transmission Date: 20120928
  Serious: No
  Sender: FDA-Public Use
  Company Number: US-GLAXOSMITHKLINE-A0948252A

PATIENT
  Age: 59 Year
  Sex: Female

DRUGS (14)
  1. GABAPENTIN [Concomitant]
  2. LEVOTHYROXINE SODIUM [Concomitant]
  3. PAPAVERINE [Concomitant]
  4. LORAZEPAM [Concomitant]
  5. DIAZEPAM [Concomitant]
  6. PROTONIX [Concomitant]
  7. FLOVENT [Suspect]
     Indication: ASTHMA
     Dosage: 1PUFF TWICE PER DAY
     Route: 055
  8. HYDROCODONE BITARTRATE [Concomitant]
  9. CYMBALTA [Concomitant]
  10. BENZONATATE [Concomitant]
  11. PRAVASTATIN [Concomitant]
  12. BACLOFEN [Concomitant]
  13. LISINOPRIL [Concomitant]
  14. AMBIEN [Concomitant]

REACTIONS (2)
  - WHEEZING [None]
  - DRUG ADMINISTRATION ERROR [None]
